FAERS Safety Report 4491998-4 (Version None)
Quarter: 2004Q4

REPORT INFORMATION
  Report Type: 
  Country: None (occurrence: None)
  Receive Date: 20041101
  Receipt Date: 20041025
  Transmission Date: 20050328
  Serious: Yes (Hospitalization)
  Sender: FDA-Public Use
  Company Number: TUK2004A00111

PATIENT
  Age: 65 Year
  Sex: Male

DRUGS (8)
  1. ACTOS [Suspect]
     Indication: DIABETES MELLITUS
     Dosage: 15 MG
     Route: 048
     Dates: start: 20040701, end: 20040825
  2. INSULIN HUMAN (INSULIN HUMAN) [Concomitant]
  3. ASPIRIN [Concomitant]
  4. FELODIPINE [Concomitant]
  5. FLUVASTATIN (FLUVASTATIN) [Concomitant]
  6. RAMIPRIL [Concomitant]
  7. BENDROFLUAZIDE (BENDROFLUMETHIAZIDE) [Concomitant]
  8. ATENOLOL [Concomitant]

REACTIONS (1)
  - DIZZINESS [None]
